FAERS Safety Report 7350266-3 (Version None)
Quarter: 2011Q1

REPORT INFORMATION
  Report Type: 
  Country: None (occurrence: None)
  Receive Date: 20110314
  Receipt Date: 20110228
  Transmission Date: 20110831
  Serious: Yes (Hospitalization, Other)
  Sender: FDA-Public Use
  Company Number: JP-JNJFOC-20101204476

PATIENT
  Sex: Female

DRUGS (25)
  1. DOXIL [Suspect]
     Dosage: CYCLE 2
     Route: 042
  2. PREMARIN [Concomitant]
     Indication: PRODUCT USED FOR UNKNOWN INDICATION
     Route: 048
  3. PURSENNID [Concomitant]
     Indication: PRODUCT USED FOR UNKNOWN INDICATION
     Route: 048
  4. CELTECT [Concomitant]
     Indication: SINUSITIS
     Route: 048
  5. HIRUDOID CREAM [Concomitant]
     Indication: PRURITUS
     Route: 061
  6. LOXOPROFEN SODIUM [Concomitant]
     Route: 048
  7. DOXIL [Suspect]
     Dosage: CYCLE 4
     Route: 042
  8. MUCOSTA [Concomitant]
     Indication: PRODUCT USED FOR UNKNOWN INDICATION
     Route: 048
  9. DECADRON [Concomitant]
     Indication: PROPHYLAXIS
     Route: 042
  10. DERMOVATE [Concomitant]
     Indication: PRURITUS
     Route: 061
  11. AZUNOL [Concomitant]
     Indication: STOMATITIS
     Route: 049
  12. ATARAX [Concomitant]
     Indication: PRODUCT USED FOR UNKNOWN INDICATION
     Route: 048
  13. GRANISETRON HCL [Concomitant]
     Indication: PROPHYLAXIS
     Route: 042
  14. DECADRON [Concomitant]
     Indication: PRODUCT USED FOR UNKNOWN INDICATION
     Route: 048
  15. DOXIL [Suspect]
     Indication: OVARIAN CANCER RECURRENT
     Dosage: CYCLE 1
     Route: 042
  16. DOXIL [Suspect]
     Dosage: CYCLE 5
     Route: 042
  17. ZOFRAN [Concomitant]
     Indication: PRODUCT USED FOR UNKNOWN INDICATION
     Route: 048
  18. LOXOPROFEN SODIUM [Concomitant]
     Indication: PRODUCT USED FOR UNKNOWN INDICATION
     Route: 048
  19. DOXIL [Suspect]
     Dosage: CYCLE 3
     Route: 042
  20. LECICARBON [Concomitant]
     Indication: CONSTIPATION
     Route: 054
  21. LIPIDIL [Suspect]
     Indication: PRODUCT USED FOR UNKNOWN INDICATION
     Route: 048
  22. MYSER [Concomitant]
     Indication: PRURITUS
     Route: 061
  23. NEUROVITAN [Concomitant]
     Indication: PROPHYLAXIS
     Route: 048
  24. EURAX [Concomitant]
     Indication: SINUSITIS
     Route: 061
  25. WHITE PETROLATUM [Concomitant]
     Indication: SINUSITIS
     Route: 061

REACTIONS (2)
  - ASPARTATE AMINOTRANSFERASE INCREASED [None]
  - PNEUMONIA [None]
